FAERS Safety Report 5867553-8 (Version None)
Quarter: 2008Q3

REPORT INFORMATION
  Report Type: 
  Country: None (occurrence: None)
  Receive Date: 20080902
  Receipt Date: 20071003
  Transmission Date: 20090109
  Serious: No
  Sender: FDA-Public Use
  Company Number: US-ABBOTT-07P-163-0419874-00

PATIENT
  Sex: Female
  Weight: 77.18 kg

DRUGS (1)
  1. DEPAKOTE ER [Suspect]
     Indication: BIPOLAR DISORDER
     Dates: start: 20070401

REACTIONS (3)
  - ANGER [None]
  - MOOD ALTERED [None]
  - UNEVALUABLE EVENT [None]
